FAERS Safety Report 16858086 (Version 1)
Quarter: 2019Q3

REPORT INFORMATION
  Report Type: Spontaneous
  Country: CN (occurrence: CN)
  Receive Date: 20190926
  Receipt Date: 20190926
  Transmission Date: 20191005
  Serious: Yes (Other)
  Sender: FDA-Public Use
  Company Number: PHHY2019CN220899

PATIENT
  Age: 76 Year
  Sex: Male
  Weight: 73 kg

DRUGS (2)
  1. PAZOPANIB [Suspect]
     Active Substance: PAZOPANIB
     Indication: RENAL CANCER
  2. PAZOPANIB [Suspect]
     Active Substance: PAZOPANIB
     Indication: IMMUNOCHEMOTHERAPY
     Dosage: 800 MG, QD
     Route: 048
     Dates: start: 20190202

REACTIONS (3)
  - Blood creatinine increased [Unknown]
  - Oral mucosal exfoliation [Unknown]
  - Skin exfoliation [Unknown]

NARRATIVE: CASE EVENT DATE: 20190830
